FAERS Safety Report 20129236 (Version 1)
Quarter: 2021Q4

REPORT INFORMATION
  Report Type: Spontaneous
  Country: US (occurrence: US)
  Receive Date: 20211130
  Receipt Date: 20211130
  Transmission Date: 20220303
  Serious: No
  Sender: FDA-Public Use
  Company Number: US-Hikma Pharmaceuticals USA Inc.-US-H14001-21-01629

PATIENT
  Sex: Female

DRUGS (7)
  1. LITHIUM [Suspect]
     Active Substance: LITHIUM
     Indication: Affective disorder
     Route: 048
     Dates: start: 20210210, end: 20210217
  2. LITHIUM [Suspect]
     Active Substance: LITHIUM
     Route: 048
     Dates: start: 20210217
  3. PRISTIQ EXTENDED-RELEASE [Concomitant]
     Active Substance: DESVENLAFAXINE SUCCINATE
     Indication: Major depression
     Route: 048
     Dates: start: 202001
  4. PRISTIQ EXTENDED-RELEASE [Concomitant]
     Active Substance: DESVENLAFAXINE SUCCINATE
     Route: 048
     Dates: start: 202001
  5. HYDROXYZINE PATOMADE [Concomitant]
     Indication: Sleep disorder therapy
     Dosage: TWO CAPSULES BY MOUTH AT BEDTIME AS NEEDED FOR SLEEP
     Route: 048
     Dates: start: 20210202
  6. GABAPENTIN [Concomitant]
     Active Substance: GABAPENTIN
     Indication: Product used for unknown indication
     Dosage: ONE CAPSULE BY MOUTH AT BEDTIME AS NEEDED
     Route: 048
     Dates: start: 20210202
  7. BUSPIRONE [Concomitant]
     Active Substance: BUSPIRONE HYDROCHLORIDE
     Indication: Product used for unknown indication
     Route: 048
     Dates: start: 20210202

REACTIONS (1)
  - Drug ineffective [Not Recovered/Not Resolved]
